FAERS Safety Report 18480327 (Version 1)
Quarter: 2020Q4

REPORT INFORMATION
  Report Type: Spontaneous
  Country: US (occurrence: US)
  Receive Date: 20201109
  Receipt Date: 20201109
  Transmission Date: 20210114
  Serious: No
  Sender: FDA-Public Use
  Company Number: US-SA-2020SA310288

PATIENT

DRUGS (11)
  1. ALLEGRA ALLERGY [Concomitant]
     Active Substance: FEXOFENADINE HYDROCHLORIDE
  2. CITALOPRAM [Concomitant]
     Active Substance: CITALOPRAM HYDROBROMIDE
  3. FLONASE ALLERGY RELIEF [Concomitant]
     Active Substance: FLUTICASONE PROPIONATE
  4. AUGMENTINE [AMOXICILLIN;CLAVULANIC ACID] [Suspect]
     Active Substance: AMOXICILLIN\CLAVULANIC ACID
  5. XYZAL [Concomitant]
     Active Substance: LEVOCETIRIZINE DIHYDROCHLORIDE
  6. METOPROLOL SUCCINATE. [Concomitant]
     Active Substance: METOPROLOL SUCCINATE
  7. DUPIXENT [Suspect]
     Active Substance: DUPILUMAB
     Indication: NASAL POLYPS
  8. DUPIXENT [Suspect]
     Active Substance: DUPILUMAB
     Indication: ILLNESS
     Dosage: 300 MG, QOW
     Route: 058
     Dates: start: 202007
  9. FLOMAX [Suspect]
     Active Substance: TAMSULOSIN HYDROCHLORIDE
  10. FINASTERIDE. [Concomitant]
     Active Substance: FINASTERIDE
  11. SYMBICORT [Concomitant]
     Active Substance: BUDESONIDE\FORMOTEROL FUMARATE DIHYDRATE

REACTIONS (19)
  - Nasopharyngitis [Recovering/Resolving]
  - Drug hypersensitivity [Unknown]
  - Vomiting [Unknown]
  - Product use in unapproved indication [Unknown]
  - Sinus disorder [Unknown]
  - Hordeolum [Recovering/Resolving]
  - Headache [Recovering/Resolving]
  - Cough [Unknown]
  - Sneezing [Unknown]
  - Ear pain [Unknown]
  - Product use complaint [Unknown]
  - Discomfort [Unknown]
  - Condition aggravated [Unknown]
  - Head discomfort [Recovering/Resolving]
  - Sneezing [Recovering/Resolving]
  - Condition aggravated [Recovering/Resolving]
  - Rhinorrhoea [Unknown]
  - Blood pressure orthostatic abnormal [Unknown]
  - Facial pain [Unknown]

NARRATIVE: CASE EVENT DATE: 2020
